FAERS Safety Report 14862223 (Version 3)
Quarter: 2019Q1

REPORT INFORMATION
  Report Type: Spontaneous
  Country: US (occurrence: US)
  Receive Date: 20180508
  Receipt Date: 20190319
  Transmission Date: 20190417
  Serious: Yes (Hospitalization)
  Sender: FDA-Public Use
  Company Number: US-B.I. PHARMACEUTICALS,INC./RIDGEFIELD-2018-BI-024743

PATIENT
  Age: 87 Year
  Sex: Male
  Weight: 81.65 kg

DRUGS (10)
  1. NITROSTAT [Concomitant]
     Active Substance: NITROGLYCERIN
     Dosage: TAKE 0.5 TABS BY MOUTH DAILY
     Route: 048
  2. HYDROCHLOROTHIAZIDE. [Concomitant]
     Active Substance: HYDROCHLOROTHIAZIDE
     Indication: CHEST PAIN
     Dosage: 0.5 TABS BY MOUTH DAILY
     Route: 048
  3. ANTIVERT [Concomitant]
     Active Substance: MECLIZINE HYDROCHLORIDE
     Indication: DIZZINESS
     Dosage: TAKE A TAB BY MOUTH 3 TIMES DAILY AS NEEDED FOR DIZZINESS
     Route: 048
  4. PRADAXA [Suspect]
     Active Substance: DABIGATRAN ETEXILATE MESYLATE
     Indication: ATRIAL FIBRILLATION
     Route: 048
     Dates: start: 20150430
  5. SYNTHROID [Concomitant]
     Active Substance: LEVOTHYROXINE SODIUM
     Indication: PRODUCT USED FOR UNKNOWN INDICATION
     Dosage: TAKE 1 TABS BY MOUTH DAILY
     Route: 048
  6. COZAAR [Concomitant]
     Active Substance: LOSARTAN POTASSIUM
     Indication: PRODUCT USED FOR UNKNOWN INDICATION
     Dosage: TAKE 1 TABS BY MOUTH DAILY
     Route: 048
  7. ECOTRIN [Concomitant]
     Active Substance: ASPIRIN
     Indication: PRODUCT USED FOR UNKNOWN INDICATION
     Dosage: TABLET, DELAYED RELEASE (E.C.)
     Route: 048
  8. NITROSTAT [Concomitant]
     Active Substance: NITROGLYCERIN
     Indication: CHEST PAIN
     Dosage: PLACE 1 TAB UNDER TOUNGE EVERY 5 MIN AS NEEDED FOR CHEST PAIN
     Route: 060
  9. PRILOSEC [Concomitant]
     Active Substance: OMEPRAZOLE MAGNESIUM
     Indication: PRODUCT USED FOR UNKNOWN INDICATION
     Dosage: TAKE 20MG BY MOUTH DAILY
     Route: 048
  10. LIPITOR [Concomitant]
     Active Substance: ATORVASTATIN CALCIUM
     Indication: PRODUCT USED FOR UNKNOWN INDICATION
     Dosage: TAKE 2 TABS BY MOUTH DAILY LATE
     Route: 048

REACTIONS (1)
  - Gastrointestinal haemorrhage [Unknown]

NARRATIVE: CASE EVENT DATE: 20150608
